FAERS Safety Report 10308074 (Version 1)
Quarter: 2014Q3

REPORT INFORMATION
  Report Type: Spontaneous
  Country: BR (occurrence: BR)
  Receive Date: 20140716
  Receipt Date: 20140716
  Transmission Date: 20150326
  Serious: Yes (Hospitalization, Other)
  Sender: FDA-Public Use
  Company Number: BR-PFIZER INC-2014194022

PATIENT
  Age: 59 Year
  Sex: Female
  Weight: 92 kg

DRUGS (4)
  1. AMITRIPTYLINE [Concomitant]
     Active Substance: AMITRIPTYLINE
     Indication: RELAXATION THERAPY
     Dosage: 2 TABLETS AT THE DINNER
     Dates: start: 201306
  2. DIPIRONE [Concomitant]
     Active Substance: METAMIZOLE SODIUM
     Indication: PAIN
     Dosage: 3 TABLETS DAILY
     Dates: start: 201306
  3. LYRICA [Suspect]
     Active Substance: PREGABALIN
     Indication: PAIN
     Dosage: 2 CAPSULES OF 75MG (150 MG), DAILY
     Route: 048
     Dates: start: 2013
  4. RIVOTRIL [Concomitant]
     Active Substance: CLONAZEPAM
     Indication: SLEEP DISORDER
     Dosage: 10 GTT, UNK
     Dates: start: 201306

REACTIONS (3)
  - Allodynia [Unknown]
  - Spinal disorder [Unknown]
  - Spinal cord compression [Unknown]

NARRATIVE: CASE EVENT DATE: 201312
